FAERS Safety Report 16653372 (Version 3)
Quarter: 2020Q2

REPORT INFORMATION
  Report Type: Spontaneous
  Country: US (occurrence: US)
  Receive Date: 20190731
  Receipt Date: 20200514
  Transmission Date: 20200713
  Serious: Yes (Hospitalization, Other)
  Sender: FDA-Public Use
  Company Number: US-VIFOR (INTERNATIONAL) INC.-VIT-2019-07320

PATIENT
  Age: 68 Year
  Sex: Male

DRUGS (2)
  1. VELTASSA [Suspect]
     Active Substance: PATIROMER
     Route: 048
     Dates: start: 201908
  2. VELTASSA [Suspect]
     Active Substance: PATIROMER
     Indication: HYPERKALAEMIA
     Route: 048
     Dates: start: 20160628, end: 201908

REACTIONS (5)
  - Thrombosis [Unknown]
  - Rib fracture [Unknown]
  - Fall [Unknown]
  - Traumatic lung injury [Unknown]
  - Surgery [Unknown]

NARRATIVE: CASE EVENT DATE: 201908
